FAERS Safety Report 25374912 (Version 1)
Quarter: 2025Q2

REPORT INFORMATION
  Report Type: Spontaneous
  Country: US (occurrence: None)
  Receive Date: 20250529
  Receipt Date: 20250529
  Transmission Date: 20250717
  Serious: Yes (Other)
  Sender: FDA-CTU
  Company Number: None

PATIENT
  Age: 42 Year
  Sex: Female
  Weight: 50.85 kg

DRUGS (3)
  1. XYZAL [Suspect]
     Active Substance: LEVOCETIRIZINE DIHYDROCHLORIDE
     Indication: Mechanical urticaria
     Dosage: OTHER QUANTITY : 1 TABLET(S);?FREQUENCY : DAILY;?
     Route: 048
     Dates: start: 20240508, end: 20250514
  2. ALBUTEROL [Concomitant]
     Active Substance: ALBUTEROL
  3. VITAMINS [Concomitant]
     Active Substance: VITAMINS

REACTIONS (5)
  - Pruritus [None]
  - Retinal disorder [None]
  - Vitreous detachment [None]
  - Vitreous detachment [None]
  - Photopsia [None]

NARRATIVE: CASE EVENT DATE: 20250105
